FAERS Safety Report 7367230-0 (Version None)
Quarter: 2011Q1

REPORT INFORMATION
  Report Type: 
  Country: None (occurrence: None)
  Receive Date: 20110322
  Receipt Date: 20110321
  Transmission Date: 20110831
  Serious: Yes (Other)
  Sender: FDA-Public Use
  Company Number: DE-B.I. PHARMACEUTICALS,INC./RIDGEFIELD-2011-DE-01122GD

PATIENT

DRUGS (2)
  1. TIOTROPIUM [Suspect]
     Indication: CHRONIC OBSTRUCTIVE PULMONARY DISEASE
     Dosage: 18 MCG
  2. ANTIHYPERTENSIVES [Suspect]
     Indication: HYPERTENSION

REACTIONS (1)
  - ELECTROCARDIOGRAM QT PROLONGED [None]
